FAERS Safety Report 6808744-9 (Version None)
Quarter: 2010Q2

REPORT INFORMATION
  Report Type: 
  Country: None (occurrence: None)
  Receive Date: 20100629
  Receipt Date: 20090902
  Transmission Date: 20101027
  Serious: No
  Sender: FDA-Public Use
  Company Number: US-PFIZER INC-2009265610

PATIENT
  Sex: Male

DRUGS (1)
  1. VIAGRA [Suspect]
     Dosage: 200 MG, 1X/DAY DAILY DOSE: 200 MG
     Dates: start: 20090902

REACTIONS (5)
  - ERYTHEMA [None]
  - INCORRECT DOSE ADMINISTERED [None]
  - PAIN [None]
  - PENIS DISORDER [None]
  - SWELLING [None]
